FAERS Safety Report 4745534-5 (Version None)
Quarter: 2005Q3

REPORT INFORMATION
  Report Type: 
  Country: None (occurrence: None)
  Receive Date: 20050811
  Receipt Date: 20050315
  Transmission Date: 20060218
  Serious: Yes (Hospitalization)
  Sender: FDA-Public Use
  Company Number: US_0503114208

PATIENT
  Age: 27 Year
  Sex: Female

DRUGS (4)
  1. ILETIN [Suspect]
     Dates: start: 19680901
  2. ILETIN [Suspect]
     Dates: start: 19680901
  3. REGULAR ILETIN II [Suspect]
     Dates: start: 19750101
  4. NPH ILETIN I (BEEF-PORK) [Suspect]
     Dates: start: 19750101

REACTIONS (2)
  - BLOOD GLUCOSE INCREASED [None]
  - KETOACIDOSIS [None]
